FAERS Safety Report 10685351 (Version 1)
Quarter: 2014Q4

REPORT INFORMATION
  Report Type: Spontaneous
  Country: US (occurrence: None)
  Receive Date: 20141229
  Receipt Date: 20141229
  Transmission Date: 20150529
  Serious: Yes (Other)
  Sender: FDA-Public Use
  Company Number: 2014PAR00001

PATIENT
  Age: 47 Year
  Sex: Male

DRUGS (5)
  1. TOBRAMYCIN. [Suspect]
     Active Substance: TOBRAMYCIN
  2. PENICILLIN [Concomitant]
     Active Substance: PENICILLIN
  3. CEFAZOLIN (CEFAZOLIN) [Concomitant]
     Active Substance: CEFAZOLIN
  4. GENTAMICIN. [Concomitant]
     Active Substance: GENTAMICIN
  5. TETANUS VACCINE (TETANUS VACCINE) [Concomitant]

REACTIONS (6)
  - Botulism [None]
  - Condition aggravated [None]
  - Fungal infection [None]
  - Dysphagia [None]
  - Neuromuscular blockade [None]
  - Skin graft [None]
